FAERS Safety Report 7854998-X (Version None)
Quarter: 2011Q4

REPORT INFORMATION
  Report Type: 
  Country: None (occurrence: None)
  Receive Date: 20111026
  Receipt Date: 20111019
  Transmission Date: 20120403
  Serious: Yes (Death, Hospitalization, Other)
  Sender: FDA-Public Use
  Company Number: US-AMGEN-QUU422379

PATIENT
  Age: 80 Year
  Sex: Male
  Weight: 73.5 kg

DRUGS (32)
  1. NPLATE [Suspect]
     Dosage: UNK UNK, QWK
     Route: 058
  2. NPLATE [Suspect]
  3. METOPROLOL TARTRATE [Concomitant]
     Dosage: 12.5 MG, BID
     Route: 048
  4. MIRTAZAPINE [Concomitant]
     Dosage: 15 MG, QD
     Route: 048
  5. ASCORBIC ACID [Concomitant]
     Dosage: 500 MG, QD
     Route: 048
     Dates: start: 20080923
  6. ACETAMINOPHEN AND OXYCODONE HCL [Concomitant]
     Dosage: 325 MG, PRN
     Route: 048
  7. DEXLANSOPRAZOLE [Concomitant]
     Dosage: 60 MG, QD
     Route: 048
     Dates: start: 20091026
  8. UNSPECIFIED ANTINEOPLASTIC AGENT [Concomitant]
  9. PROCRIT [Concomitant]
     Indication: ANAEMIA
     Dosage: UNK UNK, UNK
     Dates: start: 20080401
  10. NPLATE [Suspect]
     Dosage: UNK UNK, QWK
     Route: 058
  11. NPLATE [Suspect]
     Dosage: UNK UNK, QWK
     Route: 058
  12. NPLATE [Suspect]
     Dosage: UNK UNK, QWK
     Route: 058
  13. ZINC SULFATE [Concomitant]
     Dosage: 220 MG, BID
     Route: 048
  14. NPLATE [Suspect]
     Dosage: UNK UNK, QWK
     Route: 058
  15. NPLATE [Suspect]
     Dosage: UNK UNK, QWK
     Route: 058
  16. SERTRALINE HYDROCHLORIDE [Concomitant]
     Dosage: 25 MG, QD
     Route: 048
  17. DIGOXIN [Concomitant]
     Dosage: .125 MG, QD
     Route: 048
  18. CITRACAL PLUS D [Concomitant]
     Dosage: UNK UNK, TID
     Route: 048
     Dates: start: 20080317
  19. PIOGLITAZONE HCL [Concomitant]
     Dosage: 30 MG, QD
     Route: 048
  20. IRON [Concomitant]
     Dosage: 325 MG, TID
     Route: 048
     Dates: start: 20080606
  21. ACETAMINOPHEN AND HYDROCODONE BITARTRATE [Concomitant]
     Dosage: 500 MG, PRN
     Route: 048
     Dates: start: 20090513
  22. NPLATE [Suspect]
     Indication: IDIOPATHIC THROMBOCYTOPENIC PURPURA
     Dosage: UNK UNK, QWK
     Route: 058
     Dates: start: 20081021
  23. NPLATE [Suspect]
     Dosage: UNK UNK, QWK
     Route: 058
  24. NPLATE [Suspect]
     Dosage: UNK UNK, QWK
     Route: 058
  25. NPLATE [Suspect]
     Dosage: UNK UNK, QWK
     Route: 058
  26. NPLATE [Suspect]
  27. RANITIDINE HYDROCHLORIDE [Concomitant]
     Dosage: 150 MG, QD
  28. IRON DEXTRAN [Concomitant]
     Dosage: UNK UNK, UNK
     Dates: start: 20060104
  29. METOCLOPRAMIDE [Concomitant]
     Dosage: 5 MG, BID
     Route: 048
  30. MULTIPLE VITAMINS [Concomitant]
     Dosage: UNK UNK, QD
     Route: 048
  31. PANTOPRAZOLE SODIUM [Concomitant]
     Dosage: 40 MG, BID
     Route: 048
     Dates: start: 20090803
  32. LEVOTHYROXINE SODIUM [Concomitant]
     Dosage: UNK UNK, QOD
     Route: 048

REACTIONS (15)
  - NAUSEA [None]
  - VOMITING [None]
  - IDIOPATHIC THROMBOCYTOPENIC PURPURA [None]
  - CHILLS [None]
  - BODY TEMPERATURE INCREASED [None]
  - HIP FRACTURE [None]
  - DIARRHOEA [None]
  - FATIGUE [None]
  - MUSCULOSKELETAL CHEST PAIN [None]
  - ABDOMINAL PAIN [None]
  - NEPHROLITHIASIS [None]
  - SKELETAL INJURY [None]
  - HOSPITALISATION [None]
  - ASTHENIA [None]
  - PAIN IN EXTREMITY [None]
